FAERS Safety Report 20110694 (Version 1)
Quarter: 2021Q4

REPORT INFORMATION
  Report Type: Spontaneous
  Country: CA (occurrence: CA)
  Receive Date: 20211124
  Receipt Date: 20211124
  Transmission Date: 20220303
  Serious: Yes (Hospitalization, Other)
  Sender: FDA-Public Use
  Company Number: CA-SEAGEN-2021SGN06001

PATIENT
  Age: 23 Year

DRUGS (1)
  1. ADCETRIS [Suspect]
     Active Substance: BRENTUXIMAB VEDOTIN
     Indication: Product used for unknown indication
     Dosage: 55.0 ML

REACTIONS (6)
  - Respiratory distress [Unknown]
  - Erythema [Unknown]
  - Resuscitation [Unknown]
  - Throat irritation [Unknown]
  - Urticaria [Unknown]
  - Cough [Unknown]
